FAERS Safety Report 6495190-3 (Version None)
Quarter: 2009Q4

REPORT INFORMATION
  Report Type: 
  Country: None (occurrence: None)
  Receive Date: 20091214
  Receipt Date: 20090603
  Transmission Date: 20100525
  Serious: No
  Sender: FDA-Public Use
  Company Number: US-BRISTOL-MYERS SQUIBB COMPANY-14619845

PATIENT
  Age: 62 Year
  Sex: Female
  Weight: 92 kg

DRUGS (9)
  1. ABILIFY [Suspect]
     Indication: BIPOLAR DISORDER
     Dosage: 2 MG SAMPLE TABLETS LOT #00060 EXP DATE OCT-2010;LOT NO:8K42686A;EXP DATE:OCT09.
     Route: 048
     Dates: start: 20090402
  2. ABILIFY [Suspect]
     Indication: DEPRESSION
     Dosage: 2 MG SAMPLE TABLETS LOT #00060 EXP DATE OCT-2010;LOT NO:8K42686A;EXP DATE:OCT09.
     Route: 048
     Dates: start: 20090402
  3. TRAZODONE HCL [Suspect]
  4. CLONAZEPAM [Suspect]
  5. DARVOCET-N 100 [Suspect]
  6. FENTANYL [Suspect]
  7. BUPROPION HCL [Suspect]
     Dosage: BUPROPION XL
  8. ALPRAZOLAM [Suspect]
     Indication: ANXIETY
     Dosage: 1/2TABS BID.
  9. CHOLESTEROL MEDICATION [Concomitant]

REACTIONS (3)
  - AMNESIA [None]
  - FATIGUE [None]
  - TREMOR [None]
